FAERS Safety Report 4476376-6 (Version None)
Quarter: 2004Q4

REPORT INFORMATION
  Report Type: 
  Country: None (occurrence: None)
  Receive Date: 20041016
  Receipt Date: 20041009
  Transmission Date: 20050328
  Serious: Yes (Hospitalization)
  Sender: FDA-Public Use
  Company Number: ES-MERCK-0410ESP00052

PATIENT
  Age: 52 Year
  Sex: Female

DRUGS (9)
  1. ALENDRONATE SODIUM [Concomitant]
     Route: 048
     Dates: start: 20020901
  2. ASPIRIN [Concomitant]
     Route: 048
  3. CALCIUM (UNSPECIFIED) AND VITAMIN D (UNSPECIFIED) [Concomitant]
     Route: 048
     Dates: start: 20020901
  4. VIOXX [Suspect]
     Indication: MENISCUS OPERATION
     Route: 048
     Dates: start: 19970101
  5. VIOXX [Suspect]
     Route: 048
     Dates: start: 20020901, end: 20041008
  6. VIOXX [Suspect]
     Route: 048
     Dates: start: 20020901, end: 20041008
  7. VIOXX [Suspect]
     Indication: PATELLA FRACTURE
     Route: 048
     Dates: start: 19970101
  8. VIOXX [Suspect]
     Route: 048
     Dates: start: 20020901, end: 20041008
  9. VIOXX [Suspect]
     Route: 048
     Dates: start: 20020901, end: 20041008

REACTIONS (1)
  - CEREBRAL INFARCTION [None]
